FAERS Safety Report 6957837-4 (Version None)
Quarter: 2010Q3

REPORT INFORMATION
  Report Type: 
  Country: None (occurrence: None)
  Receive Date: 20100831
  Receipt Date: 20100823
  Transmission Date: 20110219
  Serious: Yes (Hospitalization, Other)
  Sender: FDA-Public Use
  Company Number: US-SANOFI-AVENTIS-2010SA044445

PATIENT
  Age: 74 Year
  Sex: Male

DRUGS (10)
  1. LANTUS [Suspect]
     Dosage: 16-18 UNITS DAILY
     Route: 058
     Dates: start: 20070101
  2. SOLOSTAR [Suspect]
     Indication: TYPE 2 DIABETES MELLITUS
     Dates: start: 20070101
  3. INSULIN DETEMIR [Concomitant]
     Route: 065
  4. JANUVIA [Concomitant]
     Route: 065
  5. GLIMEPIRIDE [Concomitant]
     Route: 065
  6. AMLODIPINE [Concomitant]
     Route: 065
  7. METOPROLOL TARTRATE [Concomitant]
     Route: 065
  8. PLAVIX [Concomitant]
     Route: 065
  9. SIMVASTATIN [Concomitant]
     Route: 065
  10. FUROSEMIDE [Concomitant]
     Route: 065

REACTIONS (5)
  - BLOOD GLUCOSE INCREASED [None]
  - PNEUMONIA [None]
  - SHOCK HYPOGLYCAEMIC [None]
  - TREMOR [None]
  - WEIGHT DECREASED [None]
